FAERS Safety Report 4530907-6 (Version None)
Quarter: 2004Q4

REPORT INFORMATION
  Report Type: 
  Country: None (occurrence: None)
  Receive Date: 20041215
  Receipt Date: 20041112
  Transmission Date: 20050328
  Serious: Yes (Other)
  Sender: FDA-Public Use
  Company Number: 2004104632

PATIENT
  Age: 50 Year
  Sex: Male

DRUGS (1)
  1. CELEBREX [Suspect]
     Indication: MYALGIA
     Dosage: (200MG, 1 IN 1 D), ORAL
     Route: 048
     Dates: start: 20041110, end: 20041110

REACTIONS (6)
  - ERYTHEMA [None]
  - LOCALISED OEDEMA [None]
  - MEDICATION ERROR [None]
  - MUSCLE TIGHTNESS [None]
  - RASH PRURITIC [None]
  - SELF-MEDICATION [None]
